FAERS Safety Report 8785335 (Version 1)
Quarter: 2012Q4

REPORT INFORMATION
  Report Type: Report from Study
  Country: JP (occurrence: JP)
  Receive Date: 20120914
  Receipt Date: 20120914
  Transmission Date: 20130627
  Serious: Yes (Hospitalization)
  Sender: FDA-Public Use
  Company Number: JP-ABBOTT-12P-087-0977189-00

PATIENT
  Age: 47 Year
  Sex: Male

DRUGS (6)
  1. KALETRA [Suspect]
     Indication: HIV INFECTION
     Route: 048
     Dates: start: 20070724
  2. KALETRA [Suspect]
     Route: 048
  3. EPZICOM [Suspect]
     Indication: HIV INFECTION
     Route: 048
  4. TRUVADA [Suspect]
     Indication: HIV INFECTION
     Route: 048
     Dates: start: 20070724
  5. LOPERAMIDE HYDROCHLORIDE [Concomitant]
     Indication: DIARRHOEA
     Dates: start: 20070725
  6. LAFUTIDINE [Concomitant]
     Indication: GASTRITIS
     Dates: start: 20070702

REACTIONS (2)
  - Amoebiasis [Recovering/Resolving]
  - Hyperlipidaemia [Not Recovered/Not Resolved]
